APPROVED DRUG PRODUCT: XARELTO
Active Ingredient: RIVAROXABAN
Strength: 15MG
Dosage Form/Route: TABLET;ORAL
Application: N022406 | Product #002 | TE Code: AB
Applicant: JANSSEN PHARMACEUTICALS INC
Approved: Nov 4, 2011 | RLD: Yes | RS: No | Type: RX

PATENTS:
Patent 9539218 | Expires: Feb 17, 2034
Patent 9539218 | Expires: Feb 17, 2034
Patent 9539218*PED | Expires: Aug 17, 2034